FAERS Safety Report 10446265 (Version 1)
Quarter: 2014Q3

REPORT INFORMATION
  Report Type: Spontaneous
  Country: FR (occurrence: FR)
  Receive Date: 20140911
  Receipt Date: 20140911
  Transmission Date: 20150326
  Serious: Yes (Hospitalization, Other)
  Sender: FDA-Public Use
  Company Number: FR-ABBVIE-14K-056-1280453-00

PATIENT
  Age: 61 Year
  Sex: Female

DRUGS (2)
  1. HUMIRA [Suspect]
     Active Substance: ADALIMUMAB
     Indication: COLITIS ULCERATIVE
     Dates: start: 2012, end: 201407
  2. HUMIRA [Suspect]
     Active Substance: ADALIMUMAB
     Dates: start: 201408

REACTIONS (7)
  - Appendicitis [Unknown]
  - Cholelithiasis [Unknown]
  - Drug effect incomplete [Unknown]
  - Hyperhidrosis [Recovered/Resolved]
  - Malaise [Recovered/Resolved]
  - Tremor [Recovered/Resolved]
  - Appendiceal abscess [Unknown]

NARRATIVE: CASE EVENT DATE: 201407
